FAERS Safety Report 6342176-5 (Version None)
Quarter: 2009Q3

REPORT INFORMATION
  Report Type: 
  Country: None (occurrence: None)
  Receive Date: 20090903
  Receipt Date: 20090903
  Transmission Date: 20100115
  Serious: No
  Sender: FDA-Public Use
  Company Number: None

PATIENT
  Age: 80 Year
  Sex: Female
  Weight: 63.5036 kg

DRUGS (1)
  1. METRONIDAZOLE [Suspect]
     Indication: UNEVALUABLE EVENT
     Dosage: 500 MGS 3 PER DAY
     Dates: start: 20090811, end: 20090815

REACTIONS (5)
  - ABDOMINAL DISCOMFORT [None]
  - ASTHENIA [None]
  - CONSTIPATION [None]
  - DIZZINESS [None]
  - HEADACHE [None]
